FAERS Safety Report 18107684 (Version 2)
Quarter: 2020Q3

REPORT INFORMATION
  Report Type: Spontaneous
  Country: IT (occurrence: IT)
  Receive Date: 20200804
  Receipt Date: 20200915
  Transmission Date: 20201103
  Serious: Yes (Other)
  Sender: FDA-Public Use
  Company Number: IT-PFIZER INC-2020293740

PATIENT
  Age: 55 Year
  Sex: Male
  Weight: 80 kg

DRUGS (1)
  1. MEROPENEM. [Suspect]
     Active Substance: MEROPENEM
     Indication: DIABETIC FOOT INFECTION
     Dosage: 3 G, 1X/DAY
     Dates: start: 20200710, end: 20200711

REACTIONS (5)
  - Skin reaction [Recovering/Resolving]
  - Dermatitis bullous [Recovering/Resolving]
  - Off label use [Unknown]
  - Scab [Recovering/Resolving]
  - Blister [Recovering/Resolving]

NARRATIVE: CASE EVENT DATE: 20200710
